FAERS Safety Report 23573131 (Version 3)
Quarter: 2024Q1

REPORT INFORMATION
  Report Type: Report from Study
  Country: ES (occurrence: ES)
  Receive Date: 20240227
  Receipt Date: 20240303
  Transmission Date: 20240409
  Serious: Yes (Hospitalization, Other)
  Sender: FDA-Public Use
  Company Number: ES-ABBVIE-5649078

PATIENT
  Age: 62 Year
  Sex: Male

DRUGS (2)
  1. CARBIDOPA\LEVODOPA [Suspect]
     Active Substance: CARBIDOPA\LEVODOPA
     Indication: Parkinson^s disease
     Route: 050
     Dates: start: 20161110
  2. CARBIDOPA\LEVODOPA [Suspect]
     Active Substance: CARBIDOPA\LEVODOPA

REACTIONS (15)
  - Syncope [Recovered/Resolved]
  - Hypertension [Unknown]
  - Freezing phenomenon [Unknown]
  - Loss of consciousness [Recovered/Resolved]
  - Disorientation [Unknown]
  - Hallucination [Not Recovered/Not Resolved]
  - Therapeutic product effect incomplete [Unknown]
  - Visual impairment [Unknown]
  - Syncope [Recovered/Resolved]
  - On and off phenomenon [Not Recovered/Not Resolved]
  - Fall [Recovered/Resolved]
  - Unevaluable event [Unknown]
  - Staring [Unknown]
  - Blood pressure decreased [Recovered/Resolved]
  - Tremor [Not Recovered/Not Resolved]

NARRATIVE: CASE EVENT DATE: 20240201
